FAERS Safety Report 9789487 (Version 2)
Quarter: 2014Q1

REPORT INFORMATION
  Report Type: Report from Study
  Country: BR (occurrence: BR)
  Receive Date: 20131231
  Receipt Date: 20140303
  Transmission Date: 20141002
  Serious: Yes (Hospitalization)
  Sender: FDA-Public Use
  Company Number: BR-ROCHE-1324699

PATIENT
  Sex: Male
  Weight: 138 kg

DRUGS (4)
  1. ACTEMRA [Suspect]
     Indication: RHEUMATOID ARTHRITIS
     Route: 042
  2. METHOTREXATE [Concomitant]
  3. PREDNISONE [Concomitant]
  4. ACETILCISTEINA [Concomitant]

REACTIONS (5)
  - Limb operation [Unknown]
  - Carpal tunnel syndrome [Recovered/Resolved]
  - Erysipelas [Not Recovered/Not Resolved]
  - Abscess rupture [Not Recovered/Not Resolved]
  - Immune system disorder [Not Recovered/Not Resolved]
